FAERS Safety Report 13623323 (Version 4)
Quarter: 2017Q3

REPORT INFORMATION
  Report Type: Report from Study
  Country: CA (occurrence: CA)
  Receive Date: 20170607
  Receipt Date: 20170802
  Transmission Date: 20171127
  Serious: Yes (Hospitalization)
  Sender: FDA-Public Use
  Company Number: CA-GLAXOSMITHKLINE-CA2017GSK085284

PATIENT
  Age: 61 Year
  Sex: Male

DRUGS (5)
  1. FLUTICASONE PROPIONATE+SALMETEROL XINAFOATE [Suspect]
     Active Substance: FLUTICASONE PROPIONATE\SALMETEROL XINAFOATE
     Indication: ASTHMA
     Dosage: 3 PUFF(S), QD
     Dates: start: 1997
  2. VENTOLIN [Suspect]
     Active Substance: ALBUTEROL SULFATE
     Indication: ASTHMA
     Dosage: UNK UNK, PRN, 3-4 PUFFS WHEN NEEDED
     Dates: start: 1992
  3. SPIRIVA [Suspect]
     Active Substance: TIOTROPIUM BROMIDE MONOHYDRATE
     Indication: ASTHMA
     Dosage: 1 PUFF(S), QD
  4. VENTOLIN [Suspect]
     Active Substance: ALBUTEROL SULFATE
     Dosage: 5 MG, BID
     Dates: start: 1997
  5. PREDNISONE. [Suspect]
     Active Substance: PREDNISONE
     Indication: ASTHMA
     Dosage: 15 MG, QD
     Dates: start: 1997

REACTIONS (5)
  - Arthritis [Unknown]
  - Wheezing [Unknown]
  - Asthma [Unknown]
  - Blood test abnormal [Unknown]
  - Drug effect decreased [Unknown]

NARRATIVE: CASE EVENT DATE: 2012
